FAERS Safety Report 5533461-5 (Version None)
Quarter: 2007Q4

REPORT INFORMATION
  Report Type: 
  Country: None (occurrence: None)
  Receive Date: 20071204
  Receipt Date: 20071126
  Transmission Date: 20080405
  Serious: Yes (Hospitalization, Other)
  Sender: FDA-Public Use
  Company Number: CA-ELI_LILLY_AND_COMPANY-CA200711006037

PATIENT
  Sex: Female

DRUGS (6)
  1. FORTEO [Suspect]
     Indication: OSTEOPOROSIS
     Dosage: 20 UG, DAILY (1/D)
     Route: 058
     Dates: start: 20070206
  2. LOSEC [Concomitant]
  3. MORPHINE [Concomitant]
  4. ADVAIR DISKUS 100/50 [Concomitant]
  5. TEMAZEPAM [Concomitant]
  6. VENTOLIN                                /SCH/ [Concomitant]

REACTIONS (2)
  - POSTOPERATIVE WOUND INFECTION [None]
  - SKIN CANCER [None]
